FAERS Safety Report 23934559 (Version 1)
Quarter: 2024Q2

REPORT INFORMATION
  Report Type: Spontaneous
  Country: ZA (occurrence: ZA)
  Receive Date: 20240603
  Receipt Date: 20240603
  Transmission Date: 20240716
  Serious: Yes (Hospitalization)
  Sender: FDA-Public Use
  Company Number: ZA-ABBOTT-2024A-1382284

PATIENT
  Age: 71 Year
  Sex: Female

DRUGS (30)
  1. CREON [Suspect]
     Active Substance: PANCRELIPASE AMYLASE\PANCRELIPASE LIPASE\PANCRELIPASE PROTEASE
     Indication: Pancreatic failure
     Dosage: 150 MG TAKE ONE THREE TIMES A DAY,?CREON 10000 150 MG OF PANCREATIN
     Route: 048
  2. FEXOFENADINE [Concomitant]
     Active Substance: FEXOFENADINE HYDROCHLORIDE
     Indication: Hypersensitivity
     Dosage: 180 MG AS PER PACKAGE INSERT
  3. Adco linctopent [Concomitant]
     Indication: Menopause
     Dosage: AS DIRECTED?ADCO-LINCTOPENT BROMHEXINE|ORCIPRE NALINE
  4. PALEXIA [Concomitant]
     Active Substance: TAPENTADOL HYDROCHLORIDE
     Indication: Pain
     Dosage: 100 MG TAKE ONE TABLET TWICE A DAY?PALEXIA SR TAPENTADOL
     Route: 048
  5. NORFLEX CO [Concomitant]
     Indication: Product used for unknown indication
     Dosage: AS PER PACKAGE INSERT,?NORFLEX CO ORPHENADRINE  CITRATE 35 MG,  PARACETAMOL 450 MG
  6. MONTELUKAST SODIUM [Concomitant]
     Active Substance: MONTELUKAST SODIUM
     Indication: Asthma
     Dosage: 10 MG TAKE ONE TABLET AT NIGHT?MONTEFLO MONTELUKAST
     Route: 048
  7. Stilpane [Concomitant]
     Indication: Pain
     Dosage: TAKE 1-2 CAPSULES THREE TIMES A DAY
     Route: 048
  8. Allergex [Concomitant]
     Indication: Hypersensitivity
     Dosage: 10 MG AS PER PACKAGE INSERT?ALLERGEX AND CHLORPHENIRAMINE
  9. ZOLPIDEM [Concomitant]
     Active Substance: ZOLPIDEM TARTRATE
     Indication: Sleep disorder
     Dosage: 10 MG TAKE HALF A TABLET TO ONE TABLET AT NIGHT?ZIZZ ZOLPIDEM  HEMITARTRATE
     Route: 048
  10. Allergex [Concomitant]
     Indication: Product used for unknown indication
     Dosage: AS PER PACKAGE INSERT?ALLERGEX CHLORPHENIRAMINE
  11. Tenston sa [Concomitant]
     Indication: Pain
     Dosage: TAKE 1-2 CAPSULES THREE TIMEDAILY
     Route: 048
  12. ZOLPIDEM TARTRATE [Concomitant]
     Active Substance: ZOLPIDEM TARTRATE
     Indication: Insomnia
     Dosage: 10 MG TAKE HALF A TABLET TO ONE TABLET AT NIGHT?ADCO-ZOLPIDEM  HEMITARTRATE
     Route: 048
  13. LESSMUSEC [Concomitant]
     Indication: Product used for unknown indication
     Dosage: 375 MG TAKE TWO CAPSULES THREE TIMES A DAY?LESSMUSEC CARBOCISTEINE
     Route: 048
  14. STAFOBAN [Concomitant]
     Indication: Product used for unknown indication
     Dosage: 20 MG AS DIRECTED?STAFOBAN FUSIDIC ACID
     Route: 048
  15. FLAVOXATE [Concomitant]
     Active Substance: FLAVOXATE
     Indication: Hypertonic bladder
     Dosage: 200 MG AS DIRECTED?FLOSPASM FLAVOXATE HYDROCHLORIDE
  16. SINUMAX ALLERGY [Concomitant]
     Indication: Product used for unknown indication
     Dosage: AS PER PACKAGE INSERT?SINUMAX ALLERGY LEVOCABASTINE
     Route: 045
  17. Dicloflam [Concomitant]
     Indication: Product used for unknown indication
     Dosage: 50 MG AS PER PACKAGE INSERT?DICLOFLAM B-CURRANT DICLOFENAC SODIUM
  18. Florin [Concomitant]
     Indication: Product used for unknown indication
     Dosage: 250 MG TAKE ONE TWICE A DAY
     Route: 048
  19. POTASSIUM CHLORIDE [Concomitant]
     Active Substance: POTASSIUM CHLORIDE
     Indication: Hypokalaemia
     Dosage: 600 MG TAKE TWO TABLETS DAILY FOR ONE WEEK?PLENISH-K SR POTASSIUM CHLORIDE
     Route: 048
  20. BETAHISTINE HYDROCHLORIDE [Concomitant]
     Active Substance: BETAHISTINE HYDROCHLORIDE
     Indication: Vertigo
     Dosage: 24 MG TAKE ONE TABLET TWICE A DAY?HIDRIST BETAHISTINE
     Route: 048
  21. DIETARY SUPPLEMENT\HERBALS [Concomitant]
     Active Substance: DIETARY SUPPLEMENT\HERBALS
     Indication: Product used for unknown indication
     Dosage: TAKE ONE TABLET THREE TIMES A DAY?SINUPRET FORTE NATIVE DRY EXTRACT
     Route: 048
  22. ADCO-METRONIDAZOLE [Concomitant]
     Indication: Product used for unknown indication
     Dosage: 400 MG TAKE ONE TABLET THREE TIMES A DAY?ADCO METRONIDAZOLE METRONIDAZOLE
     Route: 048
  23. Sandoz co amoxyclav [Concomitant]
     Indication: Product used for unknown indication
     Dosage: 1000 MG TAKE ONE TABLET TWICE A DAY
     Route: 048
  24. FLUTICASONE FUROATE [Concomitant]
     Active Substance: FLUTICASONE FUROATE
     Indication: Hypersensitivity
     Dosage: 27.5 MCG ONE SPRAY IN BOTH NOSTRILS DAILY?GENEMIST 120 DOSE FLUTICASONE FUROATE
     Route: 045
  25. DAPAGLIFLOZIN [Concomitant]
     Active Substance: DAPAGLIFLOZIN
     Indication: Diabetes mellitus
     Dosage: 5 MG TAKE ONE TABLET DAILY?FORXIGA DAPAGLIFLOZIN
     Route: 048
  26. CATAFLAM [Concomitant]
     Active Substance: DICLOFENAC POTASSIUM
     Indication: Product used for unknown indication
     Dosage: 50 MG TAKE ONE DISSOLVED IN WATER THREE TIMES A DAY?CATAFLAM D DICLOFENAC SODIUM
  27. CIPROFLOXACIN\DEXAMETHASONE [Concomitant]
     Active Substance: CIPROFLOXACIN\DEXAMETHASONE
     Indication: Product used for unknown indication
     Dosage: INSTILL FOUR DROPS TWICE DAILY?UNIT DOSE 4 DROPS?XINDEX CIPROFLOXACIN 3MG,  DEXAMETHASONE  1MG/ML
  28. NEUROBION [Concomitant]
     Active Substance: CYANOCOBALAMIN\PYRIDOXINE\THIAMINE
     Indication: Product used for unknown indication
     Dosage: AS PER PACKAGE INSERT?NEUROBION VITAMIN B
  29. Dis chem paracetamol [Concomitant]
     Indication: Product used for unknown indication
     Dosage: 500 MG TAKE TWO TABLETS SIX HOURLY?DIS-CHEM PARACETAMOL PARACETAMO
     Route: 048
  30. VAGIFEM [Concomitant]
     Active Substance: ESTRADIOL
     Indication: Menopause
     Dosage: 10 MCG AS DIRECTED?VAGIFEM 10 MICROGRAMS ESTRADIOL

REACTIONS (2)
  - Surgery [Unknown]
  - Gait inability [Unknown]
